FAERS Safety Report 6635754-7 (Version None)
Quarter: 2010Q1

REPORT INFORMATION
  Report Type: 
  Country: None (occurrence: None)
  Receive Date: 20100310
  Receipt Date: 20100222
  Transmission Date: 20100710
  Serious: Yes (Hospitalization, Other)
  Sender: FDA-Public Use
  Company Number: AUR-APL-2010-00652

PATIENT
  Age: 33 Year
  Sex: Male

DRUGS (10)
  1. DIDANOSINE [Suspect]
     Indication: HIV INFECTION
     Dates: start: 19981001
  2. STAVUDINE [Suspect]
     Indication: HIV INFECTION
     Dates: start: 19991001
  3. ZIDOVUDINE [Suspect]
     Indication: HIV INFECTION
     Dates: start: 19981001
  4. EFAVIRENZ [Suspect]
     Indication: HIV INFECTION
     Dates: start: 20020101
  5. LAMIVUDINE [Suspect]
     Indication: HIV INFECTION
     Dates: start: 19991001
  6. LOPINAVIR [Suspect]
     Indication: HIV INFECTION
     Dates: start: 20030301
  7. NELFINAVIR MESYLATE [Suspect]
     Indication: HIV INFECTION
     Dates: start: 19991001
  8. RITONAVIR [Suspect]
     Indication: HIV INFECTION
     Dates: start: 20030301
  9. SAQUINAVIR [Suspect]
     Indication: HIV INFECTION
     Dates: start: 19981201
  10. TENOFOVIR DISOPROSIL FUMARATE (VIREAD) [Suspect]
     Indication: HIV INFECTION
     Dates: start: 20030301

REACTIONS (4)
  - DYSPEPSIA [None]
  - MOBILITY DECREASED [None]
  - OSTEONECROSIS [None]
  - TREATMENT FAILURE [None]
